FAERS Safety Report 11781541 (Version 3)
Quarter: 2015Q4

REPORT INFORMATION
  Report Type: Spontaneous
  Country: DE (occurrence: DE)
  Receive Date: 20151126
  Receipt Date: 20151231
  Transmission Date: 20160305
  Serious: Yes (Other)
  Sender: FDA-Public Use
  Company Number: PHHY2015DE151932

PATIENT
  Age: 75 Year
  Sex: Female
  Weight: 78 kg

DRUGS (4)
  1. HYDROCHLOROTHIAZIDE. [Concomitant]
     Active Substance: HYDROCHLOROTHIAZIDE
     Indication: PRODUCT USED FOR UNKNOWN INDICATION
     Dosage: 12.5 MG, QD
     Route: 048
  2. CARMEN [Concomitant]
     Active Substance: LERCANIDIPINE
     Indication: HYPERTENSION
     Dosage: 10 MG, QD
  3. TASIGNA [Suspect]
     Active Substance: NILOTINIB
     Indication: CHRONIC MYELOID LEUKAEMIA
     Dosage: 300 MG, BID
     Route: 048
     Dates: start: 20140129
  4. BISOPROLOL [Concomitant]
     Active Substance: BISOPROLOL
     Indication: HYPERTENSION
     Dosage: 5 MG, QD
     Route: 048

REACTIONS (14)
  - Primary myelofibrosis [Recovering/Resolving]
  - General physical health deterioration [Recovering/Resolving]
  - Ureteric stenosis [Unknown]
  - Blood creatinine increased [Unknown]
  - Second primary malignancy [Recovering/Resolving]
  - Night sweats [Recovered/Resolved]
  - Weight increased [Recovering/Resolving]
  - Pruritus generalised [Recovered/Resolved]
  - Somnolence [Unknown]
  - Anaemia [Recovering/Resolving]
  - Leukocytosis [Unknown]
  - Abdominal pain [Unknown]
  - Thrombocytosis [Recovering/Resolving]
  - Weight decreased [Recovered/Resolved]

NARRATIVE: CASE EVENT DATE: 201406
